FAERS Safety Report 19936324 (Version 2)
Quarter: 2025Q2

REPORT INFORMATION
  Report Type: Spontaneous
  Country: FR (occurrence: FR)
  Receive Date: 20211009
  Receipt Date: 20250530
  Transmission Date: 20250716
  Serious: No
  Sender: NOVARTIS
  Company Number: FR-NOVARTISPH-NVSC2021FR223350

PATIENT
  Sex: Female

DRUGS (2)
  1. COSENTYX [Suspect]
     Active Substance: SECUKINUMAB
     Indication: Product used for unknown indication
     Route: 065
  2. COSENTYX [Suspect]
     Active Substance: SECUKINUMAB
     Route: 065

REACTIONS (1)
  - Maternal exposure during pregnancy [Unknown]
